FAERS Safety Report 5964309-2 (Version None)
Quarter: 2008Q4

REPORT INFORMATION
  Report Type: 
  Country: None (occurrence: None)
  Receive Date: 20081124
  Receipt Date: 20081118
  Transmission Date: 20090506
  Serious: Yes (Other)
  Sender: FDA-Public Use
  Company Number: US-PFIZER INC-2008073235

PATIENT
  Age: 40 Year
  Sex: Female

DRUGS (4)
  1. GEODON [Suspect]
     Indication: BIPOLAR DISORDER
     Route: 048
     Dates: start: 20080812, end: 20080819
  2. CYMBALTA [Concomitant]
     Dosage: DAILY DOSE:60MG
  3. LAMICTAL [Concomitant]
     Dosage: DAILY DOSE:200MG
  4. CLONAZEPAM [Concomitant]

REACTIONS (6)
  - BREATH HOLDING [None]
  - DYSARTHRIA [None]
  - DYSTONIA [None]
  - EMOTIONAL DISTRESS [None]
  - FEELING ABNORMAL [None]
  - MEMORY IMPAIRMENT [None]
